FAERS Safety Report 9222374 (Version 1)
Quarter: 2013Q1

REPORT INFORMATION
  Report Type: Spontaneous
  Country: US (occurrence: US)
  Receive Date: 20120910
  Receipt Date: 20120910
  Transmission Date: 20140127
  Serious: Yes (Other)
  Sender: FDA-Public Use
  Company Number: 2012-00374

PATIENT
  Age: 78 Year
  Sex: Female
  Weight: 61.24 kg

DRUGS (5)
  1. AMLODIPINE BESYLATE TABLETS [Suspect]
     Indication: HYPERTENSION
     Route: 048
     Dates: start: 20120223, end: 20120229
  2. TIOTROPIUM BROMIDE (SPIRIVA)(INHALANT) [Concomitant]
  3. DOMPERIDONE (TABLETS) [Concomitant]
  4. VITAMIN D (CAPSULES) [Concomitant]
  5. SIMVASTATIN (TABLETS) [Concomitant]

REACTIONS (1)
  - Chest pain [None]
